FAERS Safety Report 7885486-2 (Version None)
Quarter: 2011Q4

REPORT INFORMATION
  Report Type: 
  Country: None (occurrence: None)
  Receive Date: 20111102
  Receipt Date: 20111024
  Transmission Date: 20120403
  Serious: Yes (Other)
  Sender: FDA-Public Use
  Company Number: US-ASTRAZENECA-2011SE30492

PATIENT
  Age: 48 Year
  Sex: Male
  Weight: 108.9 kg

DRUGS (6)
  1. ATACAND HCT [Suspect]
     Indication: BLOOD PRESSURE ABNORMAL
     Dosage: 32 MG DAILY
     Route: 048
  2. FLAMATIL [Concomitant]
  3. SEROQUEL [Suspect]
     Indication: LOSS OF CONSCIOUSNESS
     Route: 048
  4. LISINOPRIL [Concomitant]
  5. ULTRAM [Concomitant]
  6. SEROQUEL [Suspect]
     Route: 048

REACTIONS (10)
  - CHEST PAIN [None]
  - COMMUNICATION DISORDER [None]
  - DIZZINESS [None]
  - ABDOMINAL DISCOMFORT [None]
  - DRUG INEFFECTIVE [None]
  - DRUG DOSE OMISSION [None]
  - HYPERTENSION [None]
  - CONVULSION [None]
  - VISUAL IMPAIRMENT [None]
  - GASTRIC DISORDER [None]
